FAERS Safety Report 23719544 (Version 4)
Quarter: 2024Q2

REPORT INFORMATION
  Report Type: Spontaneous
  Country: US (occurrence: US)
  Receive Date: 20240408
  Receipt Date: 20240513
  Transmission Date: 20240715
  Serious: Yes (Other)
  Sender: FDA-Public Use
  Company Number: US-KARYOPHARM-2024KPT000867

PATIENT

DRUGS (23)
  1. XPOVIO [Suspect]
     Active Substance: SELINEXOR
     Indication: Plasma cell myeloma in remission
     Dosage: 80 MG, 2X/WEEK
     Route: 048
     Dates: start: 20240326
  2. XPOVIO [Suspect]
     Active Substance: SELINEXOR
     Dosage: 60 MG, WEEKLY 3 TABS BY MOUTH WEEKLY FOR 4 WEEKS
     Route: 048
     Dates: end: 202404
  3. XPOVIO [Suspect]
     Active Substance: SELINEXOR
     Dosage: 40 MG, WEEKLY
     Route: 048
     Dates: start: 202404
  4. ACYCLOVIR [Concomitant]
     Active Substance: ACYCLOVIR
  5. ALBUTEROL SULFATE [Concomitant]
     Active Substance: ALBUTEROL SULFATE
  6. ATACAND [Concomitant]
     Active Substance: CANDESARTAN CILEXETIL
  7. DEXAMETHASONE [Concomitant]
     Active Substance: DEXAMETHASONE
  8. SENNA LIQUID [Concomitant]
     Active Substance: SENNOSIDES
  9. DIPHENHYDRAMINE [Concomitant]
     Active Substance: DIPHENHYDRAMINE
  10. ELIQUIS [Concomitant]
     Active Substance: APIXABAN
  11. GABAPENTIN [Concomitant]
     Active Substance: GABAPENTIN
  12. LEVOTHYROXINE SODIUM [Concomitant]
     Active Substance: LEVOTHYROXINE SODIUM
  13. LOPERAMIDE [Concomitant]
     Active Substance: LOPERAMIDE
  14. MELATONIN [Concomitant]
     Active Substance: MELATONIN
  15. METOPROLOL SUCCINATE [Concomitant]
     Active Substance: METOPROLOL SUCCINATE
  16. MIRTAZAPINE [Concomitant]
     Active Substance: MIRTAZAPINE
  17. ONDANSETRON [Concomitant]
     Active Substance: ONDANSETRON
  18. OLANZAPINE [Concomitant]
     Active Substance: OLANZAPINE
  19. OMEPRAZOLE [Concomitant]
     Active Substance: DONEPEZIL HYDROCHLORIDE\OMEPRAZOLE\OMEPRAZOLE MAGNESIUM
  20. OXYCODONE [Concomitant]
     Active Substance: OXYCODONE\OXYCODONE HYDROCHLORIDE
  21. SHINGRIX [Concomitant]
     Active Substance: RECOMBINANT VARICELLA ZOSTER VIRUS (VZV) GLYCOPROTEIN E
  22. TAMSULOSIN [Concomitant]
     Active Substance: TAMSULOSIN
  23. PERIDEX [CHLORHEXIDINE GLUCONATE] [Concomitant]

REACTIONS (7)
  - Anaemia [Not Recovered/Not Resolved]
  - Hypotension [Unknown]
  - Quality of life decreased [Unknown]
  - Diarrhoea [Not Recovered/Not Resolved]
  - Fatigue [Not Recovered/Not Resolved]
  - Confusional state [Unknown]
  - Weight decreased [Unknown]

NARRATIVE: CASE EVENT DATE: 20240101
